FAERS Safety Report 19443523 (Version 2)
Quarter: 2021Q3

REPORT INFORMATION
  Report Type: Spontaneous
  Country: DE (occurrence: DE)
  Receive Date: 20210621
  Receipt Date: 20210705
  Transmission Date: 20211014
  Serious: Yes (Hospitalization, Other)
  Sender: FDA-Public Use
  Company Number: NVSC2021DE131797

PATIENT
  Sex: Male
  Weight: 100 kg

DRUGS (3)
  1. PACLITAX NAB [Suspect]
     Active Substance: PACLITAXEL
     Indication: NON-SMALL CELL LUNG CANCER
     Dosage: 418 MG  1ST LINE
     Route: 065
     Dates: start: 20201001, end: 20201001
  2. CARBOPLATIN. [Suspect]
     Active Substance: CARBOPLATIN
     Indication: NON-SMALL CELL LUNG CANCER
     Dosage: 330.4 MG (1ST LINE)
     Route: 065
     Dates: start: 20201001, end: 20201001
  3. PEMBROLIZUMAB. [Suspect]
     Active Substance: PEMBROLIZUMAB
     Indication: NON-SMALL CELL LUNG CANCER
     Dosage: 200 MG, QD  FIRST LINE
     Route: 065
     Dates: start: 20201001, end: 20201001

REACTIONS (2)
  - Erythema multiforme [Recovered/Resolved]
  - Rash [Recovered/Resolved]

NARRATIVE: CASE EVENT DATE: 20201020
